FAERS Safety Report 8583917-6 (Version None)
Quarter: 2012Q3

REPORT INFORMATION
  Report Type: 
  Country: None (occurrence: None)
  Receive Date: 20120810
  Receipt Date: 20120626
  Transmission Date: 20120928
  Serious: No
  Sender: FDA-Public Use
  Company Number: US-009507513-1207USA005775

PATIENT

DRUGS (4)
  1. AXID [Concomitant]
     Indication: PRODUCT USED FOR UNKNOWN INDICATION
  2. MIRALAX [Suspect]
     Indication: CONSTIPATION
     Dosage: UNK, QPM
     Route: 048
     Dates: start: 20120520, end: 20120524
  3. TOPROL-XL [Concomitant]
     Indication: PRODUCT USED FOR UNKNOWN INDICATION
     Dosage: UNK, UNKNOWN
  4. MIRALAX [Suspect]
     Indication: MEDICAL OBSERVATION

REACTIONS (1)
  - DRUG INEFFECTIVE [None]
